FAERS Safety Report 12664138 (Version 1)
Quarter: 2016Q3

REPORT INFORMATION
  Report Type: Spontaneous
  Country: GB (occurrence: GB)
  Receive Date: 20160818
  Receipt Date: 20160818
  Transmission Date: 20161109
  Serious: Yes (Other)
  Sender: FDA-Public Use
  Company Number: GB-GALDERMA-GB16005601

PATIENT
  Age: 63 Year
  Sex: Female
  Weight: 80 kg

DRUGS (18)
  1. HUMULIN M3 [Concomitant]
     Active Substance: INSULIN HUMAN
     Indication: PRODUCT USE ISSUE
     Dates: start: 20160509
  2. QUINAPRIL. [Concomitant]
     Active Substance: QUINAPRIL
     Indication: PRODUCT USE ISSUE
     Dates: start: 20151204
  3. DOXYCYCLINE. [Suspect]
     Active Substance: DOXYCYCLINE
     Indication: PRODUCT USE ISSUE
     Dates: start: 20160805
  4. EMPAGLIFLOZIN [Concomitant]
     Active Substance: EMPAGLIFLOZIN
     Indication: PRODUCT USE ISSUE
     Dates: start: 20151223, end: 20160509
  5. HYDROXOCOBALAMIN [Concomitant]
     Active Substance: HYDROXOCOBALAMIN
     Indication: PRODUCT USE ISSUE
     Dates: start: 20160506, end: 20160603
  6. OMEPRAZOLE. [Concomitant]
     Active Substance: OMEPRAZOLE
     Indication: PRODUCT USE ISSUE
     Dates: start: 20151204
  7. ANORO ELLIPTA [Concomitant]
     Active Substance: UMECLIDINIUM BROMIDE\VILANTEROL TRIFENATATE
     Indication: PRODUCT USE ISSUE
     Dates: start: 20151223
  8. SIMVASTATIN. [Concomitant]
     Active Substance: SIMVASTATIN
     Indication: PRODUCT USE ISSUE
     Dates: start: 20151204
  9. CLARITHROMYCIN. [Concomitant]
     Active Substance: CLARITHROMYCIN
     Indication: PRODUCT USE ISSUE
     Dates: start: 20160805
  10. ACTIVON TULLE [Concomitant]
     Indication: PRODUCT USE ISSUE
     Dates: start: 20160805
  11. ASPIRIN. [Concomitant]
     Active Substance: ASPIRIN
     Indication: PRODUCT USE ISSUE
     Dates: start: 20151204
  12. BYETTA [Concomitant]
     Active Substance: EXENATIDE
     Indication: PRODUCT USE ISSUE
     Dates: start: 20151223, end: 20160509
  13. FERROUS SULFATE. [Concomitant]
     Active Substance: FERROUS SULFATE
     Indication: PRODUCT USE ISSUE
     Dates: start: 20160509, end: 20160606
  14. METFORMIN [Concomitant]
     Active Substance: METFORMIN HYDROCHLORIDE
     Indication: PRODUCT USE ISSUE
     Dates: start: 20151204
  15. FERROUS FUMARATE [Concomitant]
     Active Substance: FERROUS FUMARATE
     Indication: PRODUCT USE ISSUE
     Dates: start: 20160603, end: 20160701
  16. GLUCOSE [Concomitant]
     Active Substance: DEXTROSE
     Indication: PRODUCT USE ISSUE
     Dates: start: 20160509
  17. SALBUTAMOL [Concomitant]
     Active Substance: ALBUTEROL
     Indication: PRODUCT USE ISSUE
     Dosage: AS NECESSARY
     Dates: start: 20151229
  18. GLICLAZIDE [Concomitant]
     Active Substance: GLICLAZIDE
     Indication: PRODUCT USE ISSUE
     Dates: start: 20151204, end: 20160509

REACTIONS (1)
  - Malaise [Recovering/Resolving]

NARRATIVE: CASE EVENT DATE: 20160805
